FAERS Safety Report 5139309-5 (Version None)
Quarter: 2006Q4

REPORT INFORMATION
  Report Type: 
  Country: None (occurrence: None)
  Receive Date: 20061030
  Receipt Date: 20060804
  Transmission Date: 20070319
  Serious: Yes (Other)
  Sender: FDA-Public Use
  Company Number: US-ELI_LILLY_AND_COMPANY-US200608001001

PATIENT
  Age: 50 Year
  Sex: Female
  Weight: 68.027 kg

DRUGS (11)
  1. ALIMTA [Suspect]
     Indication: NON-SMALL CELL LUNG CANCER STAGE IV
     Dosage: 815 MG, UNK
     Route: 042
     Dates: start: 20060522, end: 20060821
  2. FOLIC ACID [Concomitant]
     Indication: VITAMIN SUPPLEMENTATION
     Dosage: 1 MG, UNK
     Route: 048
     Dates: start: 20060522, end: 20060821
  3. VITAMIN B-12 [Concomitant]
     Indication: VITAMIN SUPPLEMENTATION
     Dosage: 1000 UG, UNK
     Route: 030
     Dates: start: 20060522, end: 20060821
  4. COUMADIN [Concomitant]
     Dosage: UNK, UNK
     Dates: end: 20060901
  5. DEXAMETHASONE TAB [Concomitant]
     Indication: PROPHYLAXIS
  6. DURAGESIC-100 [Concomitant]
  7. DILAUDID                                /CAN/ [Concomitant]
  8. ZOFRAN [Concomitant]
  9. METOCLOPRAMIDE [Concomitant]
  10. PROMETHAZINE [Concomitant]
  11. LORAZEPAM [Concomitant]

REACTIONS (2)
  - INTERNATIONAL NORMALISED RATIO INCREASED [None]
  - PROTHROMBIN TIME PROLONGED [None]
